FAERS Safety Report 4989328-4 (Version None)
Quarter: 2006Q2

REPORT INFORMATION
  Report Type: 
  Country: None (occurrence: None)
  Receive Date: 20060426
  Receipt Date: 20060421
  Transmission Date: 20061013
  Serious: Yes (Death, Hospitalization)
  Sender: FDA-Public Use
  Company Number: 2006-03-1151

PATIENT
  Age: 42 Year
  Sex: Male

DRUGS (10)
  1. OXYCONTIN [Suspect]
     Indication: CANCER PAIN
     Dosage: SEE IMAGE
     Route: 048
     Dates: start: 20050713, end: 20050928
  2. OXYCONTIN [Suspect]
     Indication: CANCER PAIN
     Dosage: SEE IMAGE
     Route: 048
     Dates: start: 20050929, end: 20051019
  3. WINTERMIN [Suspect]
     Indication: HICCUPS
     Dosage: 10 MG ORAL
     Route: 048
     Dates: start: 20050820, end: 20050908
  4. RINDERON-VG OINTMENT [Concomitant]
  5. MAGNESIUM OXIDE [Concomitant]
  6. GASTROM [Concomitant]
  7. MORPHINE [Concomitant]
  8. NAUZELIN [Concomitant]
  9. PARAPLATIN [Concomitant]
  10. TAXOL [Concomitant]

REACTIONS (11)
  - ANXIETY DISORDER [None]
  - CARDIAC ARREST [None]
  - CONVULSION [None]
  - DIZZINESS [None]
  - HEADACHE [None]
  - HEPATIC FUNCTION ABNORMAL [None]
  - MENINGITIS [None]
  - METASTASES TO MENINGES [None]
  - NAUSEA [None]
  - NEOPLASM PROGRESSION [None]
  - VOMITING [None]
